FAERS Safety Report 20755776 (Version 1)
Quarter: 2022Q2

REPORT INFORMATION
  Report Type: Spontaneous
  Country: IR (occurrence: IR)
  Receive Date: 20220427
  Receipt Date: 20220427
  Transmission Date: 20220721
  Serious: Yes (Hospitalization)
  Sender: FDA-Public Use
  Company Number: IR-ALKEM LABORATORIES LIMITED-IR-ALKEM-2022-03236

PATIENT
  Age: 57 Year
  Sex: Male

DRUGS (3)
  1. SILDENAFIL [Suspect]
     Active Substance: SILDENAFIL
     Indication: Erectile dysfunction
     Dosage: 50 MILLIGRAM
     Route: 065
  2. ASIAN GINSENG [Suspect]
     Active Substance: ASIAN GINSENG
     Indication: Erectile dysfunction
     Dosage: UNK
     Route: 065
  3. PRAMIPEXOLE [Concomitant]
     Active Substance: PRAMIPEXOLE
     Indication: Parkinson^s disease
     Dosage: 1.5 MILLIGRAM, OD
     Route: 065

REACTIONS (1)
  - Psychotic disorder [Not Recovered/Not Resolved]
